FAERS Safety Report 9440560 (Version 2)
Quarter: 2014Q2

REPORT INFORMATION
  Report Type: Spontaneous
  Country: FR (occurrence: FR)
  Receive Date: 20130805
  Receipt Date: 20140515
  Transmission Date: 20141212
  Serious: Yes (Congenital Anomaly)
  Sender: FDA-Public Use
  Company Number: FR-009507513-1308FRA000311

PATIENT
  Sex: Male

DRUGS (2)
  1. STROMECTOL [Suspect]
     Dosage: 1 DF, ONCE
     Route: 064
     Dates: start: 201304
  2. CRESTOR [Suspect]
     Dosage: 10 MG, QD
     Route: 064
     Dates: start: 201302, end: 201304

REACTIONS (2)
  - Congenital cardiovascular anomaly [Recovered/Resolved with Sequelae]
  - Foetal exposure during pregnancy [Recovered/Resolved]
